FAERS Safety Report 18984750 (Version 3)
Quarter: 2021Q2

REPORT INFORMATION
  Report Type: Other
  Country: IT (occurrence: IT)
  Receive Date: 20210308
  Receipt Date: 20210419
  Transmission Date: 20210717
  Serious: Yes (Other)
  Sender: FDA-Public Use
  Company Number: IT-CELLTRION INC.-2021IT002701

PATIENT

DRUGS (7)
  1. ATEZOLIZUMAB. [Suspect]
     Active Substance: ATEZOLIZUMAB
     Indication: HER2 POSITIVE BREAST CANCER
     Dosage: 1200 MG, EVERY 3 WEEKS, LAST DOSE BEFORE SAE ON 25/AUG/2020, 10 CYCLES
     Route: 041
     Dates: start: 20191231, end: 20200825
  2. PERTUZUMAB. [Suspect]
     Active Substance: PERTUZUMAB
     Indication: HER2 POSITIVE BREAST CANCER
     Dosage: 420 MG, LAST DOSE BEFORE SAE ON 25/AUG/2020, 10 CYCLES
     Route: 042
     Dates: start: 20191231
  3. CARBOPLATINUM [Suspect]
     Active Substance: CARBOPLATIN
     Indication: HER2 POSITIVE BREAST CANCER
     Dosage: 220 MG, LAST DOSE BEFORE SAE ON 28/APR/2020, 6 CYCLES (12 DOSES)
     Route: 042
     Dates: start: 20190831, end: 20200428
  4. PACLITAXEL. [Suspect]
     Active Substance: PACLITAXEL
     Indication: HER2 POSITIVE BREAST CANCER
     Dosage: 160 MG, LAST DOSE BEFORE SAE ON 28/APR/2020, 6 CYCLES (12 DOSES)
     Route: 042
     Dates: start: 20191231, end: 20200428
  5. LEVOFLOXACIN. [Concomitant]
     Active Substance: LEVOFLOXACIN
     Indication: SEROMA
     Dosage: UNK
     Dates: start: 20200604, end: 20200701
  6. TAMOXIFEN [Concomitant]
     Active Substance: TAMOXIFEN
     Dosage: UNK
     Dates: start: 20200601, end: 20200824
  7. TRASTUZUMAB (UNKNOWN) [Suspect]
     Active Substance: TRASTUZUMAB
     Indication: HER2 POSITIVE BREAST CANCER
     Dosage: 426 MG, LAST DOSE BEFORE SAE ON 25/AUG/2020, 10 CYCLES
     Route: 042
     Dates: start: 20191231

REACTIONS (1)
  - Tenosynovitis [Not Recovered/Not Resolved]

NARRATIVE: CASE EVENT DATE: 20200918
